FAERS Safety Report 25426558 (Version 1)
Quarter: 2025Q2

REPORT INFORMATION
  Report Type: Spontaneous
  Country: ES (occurrence: ES)
  Receive Date: 20250612
  Receipt Date: 20250612
  Transmission Date: 20250717
  Serious: Yes (Hospitalization)
  Sender: RANBAXY
  Company Number: ES-SUN PHARMACEUTICAL INDUSTRIES LTD-2025RR-511094

PATIENT
  Age: 74 Year
  Sex: Male
  Weight: 73.1 kg

DRUGS (1)
  1. OMEPRAZOLE [Suspect]
     Active Substance: OMEPRAZOLE
     Indication: Intermittent claudication
     Dosage: 20 MILLIGRAM, QD
     Route: 048
     Dates: start: 20240826, end: 20241009

REACTIONS (1)
  - Nephritis [Not Recovered/Not Resolved]

NARRATIVE: CASE EVENT DATE: 20240902
